FAERS Safety Report 5211235-2 (Version None)
Quarter: 2006Q4

REPORT INFORMATION
  Report Type: 
  Country: None (occurrence: None)
  Receive Date: 20061114
  Receipt Date: 20060828
  Transmission Date: 20070319
  Serious: No
  Sender: FDA-Public Use
  Company Number: S06-USA-03477-01

PATIENT
  Age: 84 Year
  Sex: Female

DRUGS (7)
  1. NAMENDA [Suspect]
     Indication: DEMENTIA
     Dosage: 10 MG, BID; PO
     Route: 048
     Dates: start: 20060101
  2. NAMENDA [Suspect]
     Indication: DEMENTIA
     Dosage: 5 MG, QD; PO
     Route: 048
     Dates: start: 20060701, end: 20060101
  3. NAMENDA [Suspect]
     Indication: DEMENTIA
     Dosage: 5 MG, BID; PO
     Route: 048
     Dates: start: 20060101, end: 20060101
  4. NAMENDA [Suspect]
     Indication: DEMENTIA
     Dosage: 15 MG QD; PO
     Route: 048
     Dates: start: 20060101, end: 20060101
  5. ANTIHYPERTENSIVE MEDICATION (NOS) [Concomitant]
  6. WATER PILL (NOS) [Concomitant]
  7. ARTHRITIS MEDICATION (NOS) [Concomitant]

REACTIONS (1)
  - HAIR TEXTURE ABNORMAL [None]
